FAERS Safety Report 7783505-5 (Version None)
Quarter: 2011Q3

REPORT INFORMATION
  Report Type: 
  Country: None (occurrence: None)
  Receive Date: 20110928
  Receipt Date: 20101025
  Transmission Date: 20111222
  Serious: Yes (Life-Threatening, Hospitalization)
  Sender: FDA-Public Use
  Company Number: US-MYLANLABS-2010S1018564

PATIENT
  Age: 71 Year
  Sex: Female
  Weight: 62.51 kg

DRUGS (9)
  1. TRAMADOL [Concomitant]
     Indication: PAIN
  2. TOLMETIN SODIUM [Suspect]
     Indication: OSTEOARTHRITIS
     Route: 048
     Dates: start: 20090612, end: 20100912
  3. ASPIRIN [Concomitant]
  4. ASMANEX TWISTHALER [Concomitant]
     Indication: ASTHMA
  5. TOLMETIN SODIUM [Suspect]
     Route: 048
     Dates: start: 20090612, end: 20100912
  6. NEURONTIN [Concomitant]
  7. DIOVAN [Concomitant]
  8. ALBUTEROL INHALER [Concomitant]
  9. VITAMIN TAB [Concomitant]

REACTIONS (1)
  - ANAPHYLACTIC REACTION [None]
